FAERS Safety Report 17063617 (Version 3)
Quarter: 2020Q1

REPORT INFORMATION
  Report Type: Report from Study
  Country: DE (occurrence: DE)
  Receive Date: 20191122
  Receipt Date: 20200116
  Transmission Date: 20200409
  Serious: Yes (Death, Hospitalization, Other)
  Sender: FDA-Public Use
  Company Number: DE-BEH-2019107842

PATIENT
  Age: 59 Year
  Sex: Female
  Weight: 70 kg

DRUGS (19)
  1. PRIVIGEN [Suspect]
     Active Substance: HUMAN IMMUNOGLOBULIN G
     Dosage: 20 GRAM, TOT
     Route: 042
     Dates: start: 20190228
  2. DEKRISTOL [Concomitant]
     Active Substance: CHOLECALCIFEROL
     Dosage: 20 MILLIGRAM, QW
     Dates: start: 2019
  3. PRIVIGEN [Suspect]
     Active Substance: HUMAN IMMUNOGLOBULIN G
     Dosage: 20 GRAM, TOT
     Route: 042
     Dates: start: 20190425
  4. DREISAVIT N [Concomitant]
     Dosage: UNK, QD
     Dates: start: 2019
  5. BONDRONAT [IBANDRONIC ACID] [Concomitant]
     Active Substance: IBANDRONIC ACID
     Dosage: 2 MG/2ML, QMT
     Dates: start: 2019
  6. ELIQUIS [Concomitant]
     Active Substance: APIXABAN
     Dosage: 2.5 MILLIGRAM, BID
     Dates: start: 2019
  7. PRIVIGEN [Suspect]
     Active Substance: HUMAN IMMUNOGLOBULIN G
     Dosage: 10 GRAM/0.1L, QMT
     Route: 065
     Dates: start: 2019
  8. ANTI-KALIUM NA [Concomitant]
     Dosage: 12 G/ 15 G
     Dates: start: 2019
  9. FERMED [CEFACLOR] [Concomitant]
     Dosage: 100 MG/5ML, QW
     Dates: start: 2019
  10. PRIVIGEN [Suspect]
     Active Substance: HUMAN IMMUNOGLOBULIN G
     Indication: INFECTION
     Dosage: 20 GRAM, TOT
     Route: 042
     Dates: start: 20190131
  11. ESOMEP [ESOMEPRAZOLE] [Concomitant]
     Dosage: 21.7 MILLIGRAM, BID
     Dates: start: 2019
  12. PRIVIGEN [Suspect]
     Active Substance: HUMAN IMMUNOGLOBULIN G
     Indication: HYPOGAMMAGLOBULINAEMIA
     Dosage: 20 GRAM, TOT
     Route: 042
     Dates: start: 20190103
  13. PRIVIGEN [Suspect]
     Active Substance: HUMAN IMMUNOGLOBULIN G
     Dosage: 20 GRAM, TOT
     Route: 042
     Dates: start: 20190328
  14. FOSRENOL [Concomitant]
     Active Substance: LANTHANUM CARBONATE
     Dosage: 100 MILLIGRAM, TID
     Dates: start: 2019
  15. HEPATODORON [Concomitant]
     Dosage: 40 MILLIGRAM, BID
     Dates: start: 2019
  16. PRIVIGEN [Suspect]
     Active Substance: HUMAN IMMUNOGLOBULIN G
     Indication: PLASMA CELL MYELOMA
     Dosage: 20 GRAM, TOT
     Route: 042
     Dates: start: 20181127
  17. BICANORM [Concomitant]
     Active Substance: SODIUM BICARBONATE
     Dosage: 1 GRAM, BID
     Dates: start: 2019
  18. CEFASEL [Concomitant]
     Dosage: UNK, QD
     Dates: start: 2019
  19. TAVEGIL [CLEMASTINE FUMARATE] [Concomitant]
     Active Substance: CLEMASTINE FUMARATE
     Dosage: 2 MILLIGRAM/2 ML, QMT
     Dates: start: 2019

REACTIONS (9)
  - Death [Fatal]
  - Nausea [Unknown]
  - Syncope [Unknown]
  - Loss of consciousness [Unknown]
  - Renal failure [Unknown]
  - Hypotension [Unknown]
  - Vomiting [Unknown]
  - Paraesthesia [Unknown]
  - Eye haematoma [Unknown]

NARRATIVE: CASE EVENT DATE: 2019
